FAERS Safety Report 10207357 (Version 1)
Quarter: 2014Q2

REPORT INFORMATION
  Report Type: Spontaneous
  Country: US (occurrence: None)
  Receive Date: 20140527
  Receipt Date: 20140527
  Transmission Date: 20141212
  Serious: No
  Sender: FDA-Public Use
  Company Number: None

PATIENT
  Age: 23 Year
  Sex: Female

DRUGS (1)
  1. LAMISIL [Suspect]
     Dosage: 14 DAYS.
     Dates: start: 20110705, end: 20110719

REACTIONS (3)
  - Liver injury [None]
  - Drug-induced liver injury [None]
  - Cholestasis [None]
